FAERS Safety Report 5201987-X (Version None)
Quarter: 2007Q1

REPORT INFORMATION
  Report Type: 
  Country: None (occurrence: None)
  Receive Date: 20070104
  Receipt Date: 20070104
  Transmission Date: 20070707
  Serious: Yes (Life-Threatening, Hospitalization)
  Sender: FDA-Public Use
  Company Number: None

PATIENT
  Age: 14 Year
  Sex: Female
  Weight: 47 kg

DRUGS (9)
  1. NORVASC [Suspect]
     Indication: HYPERTENSION
     Dosage: 5 MG BID PO
     Route: 048
     Dates: start: 20061109, end: 20061110
  2. CIDOFOVIR [Concomitant]
  3. PROGRAF [Concomitant]
  4. TYLENOL W/ CODEINE NO. 3 [Concomitant]
  5. TRAMADOL HCL [Concomitant]
  6. PREDNISONE [Concomitant]
  7. LO/OVRAL [Concomitant]
  8. PREVACID [Concomitant]
  9. FLUCONAZOLE [Concomitant]

REACTIONS (2)
  - STEVENS-JOHNSON SYNDROME [None]
  - TOXIC EPIDERMAL NECROLYSIS [None]
